FAERS Safety Report 5578972-1 (Version None)
Quarter: 2007Q4

REPORT INFORMATION
  Report Type: 
  Country: None (occurrence: None)
  Receive Date: 20071228
  Receipt Date: 20071217
  Transmission Date: 20080405
  Serious: Yes (Death)
  Sender: FDA-Public Use
  Company Number: 2007S1012899

PATIENT
  Age: 18 Year
  Sex: Female

DRUGS (3)
  1. PHENYTOIN [Suspect]
     Dosage: ; ORAL
     Route: 048
  2. VALPROIC ACID [Suspect]
     Dosage: ; ORAL
     Route: 048
  3. CARBAMAZEPINE [Suspect]
     Indication: EPILEPSY
     Dosage: ; ORAL
     Route: 048

REACTIONS (8)
  - BRADYARRHYTHMIA [None]
  - CARDIAC ARREST [None]
  - COMA [None]
  - OVERDOSE [None]
  - STATUS EPILEPTICUS [None]
  - TACHYCARDIA [None]
  - VENTRICULAR FIBRILLATION [None]
  - VENTRICULAR TACHYCARDIA [None]
